FAERS Safety Report 25781999 (Version 1)
Quarter: 2025Q3

REPORT INFORMATION
  Report Type: Report from Study
  Country: US (occurrence: US)
  Receive Date: 20250909
  Receipt Date: 20250909
  Transmission Date: 20251021
  Serious: Yes (Other)
  Sender: ABBVIE
  Company Number: US-ABBVIE-6448245

PATIENT
  Age: 79 Year
  Sex: Female

DRUGS (1)
  1. VYALEV [Suspect]
     Active Substance: FOSCARBIDOPA\FOSLEVODOPA
     Indication: Product used for unknown indication
     Route: 058
     Dates: start: 20250307

REACTIONS (3)
  - Suicidal ideation [Not Recovered/Not Resolved]
  - Somnolence [Unknown]
  - Food refusal [Unknown]

NARRATIVE: CASE EVENT DATE: 20250905
